FAERS Safety Report 5782470-X (Version None)
Quarter: 2008Q2

REPORT INFORMATION
  Report Type: 
  Country: None (occurrence: None)
  Receive Date: 20080623
  Receipt Date: 20080229
  Transmission Date: 20081010
  Serious: No
  Sender: FDA-Public Use
  Company Number: US-AMGEN-KDL267638

PATIENT
  Sex: Female

DRUGS (10)
  1. EPOGEN [Suspect]
     Indication: DIALYSIS
     Dates: start: 20071210
  2. EPOGEN [Suspect]
  3. ARANESP [Suspect]
     Indication: DIALYSIS
     Dates: start: 20070101
  4. ARANESP [Suspect]
  5. ZEMPLAR [Concomitant]
  6. HEPARIN [Concomitant]
  7. NEURONTIN [Concomitant]
  8. LANTUS [Concomitant]
  9. RENAGEL [Concomitant]
  10. PHOSLO [Concomitant]

REACTIONS (5)
  - HAEMOGLOBIN DECREASED [None]
  - HYPERSENSITIVITY [None]
  - INFLUENZA LIKE ILLNESS [None]
  - NAUSEA [None]
  - VOMITING [None]
